FAERS Safety Report 17772915 (Version 2)
Quarter: 2021Q3

REPORT INFORMATION
  Report Type: Report from Study
  Country: US (occurrence: US)
  Receive Date: 20200512
  Receipt Date: 20210727
  Transmission Date: 20211014
  Serious: Yes (Death, Other)
  Sender: FDA-Public Use
  Company Number: US-PFIZER INC-2020185262

PATIENT

DRUGS (10)
  1. ETOPOSIDE. [Suspect]
     Active Substance: ETOPOSIDE
     Indication: MEDULLOBLASTOMA
     Dosage: 4 MG/KG, CYCLIC (ON DAYS 2 AND 3) (INDUCTION)
     Route: 042
  2. ETOPOSIDE. [Suspect]
     Active Substance: ETOPOSIDE
     Indication: MEDULLOBLASTOMA
     Dosage: 250 MG/M2, CYCLIC (250 MG/M2/DAY X 3D) (CONSOLIDATION)
  3. THIOTEPA. [Suspect]
     Active Substance: THIOTEPA
     Indication: MEDULLOBLASTOMA
     Dosage: 300 MG/M2, CYCLIC (300 MG/M2/DAY X 3D) (CONSOLIDATION)
  4. ETOPOSIDE. [Suspect]
     Active Substance: ETOPOSIDE
     Indication: MEDULLOBLASTOMA
     Dosage: 1.65 MG/KG, CYCLIC (ON DAYS 1 TO 10) (INDUCTION)
     Route: 048
  5. TEMOZOLOMIDE. [Suspect]
     Active Substance: TEMOZOLOMIDE
     Indication: MEDULLOBLASTOMA
     Dosage: 6.5 MG/KG, CYCLIC (ON DAYS 1 TO 5) (INDUCTION)
     Route: 048
  6. CARBOPLATIN. [Suspect]
     Active Substance: CARBOPLATIN
     Indication: MEDULLOBLASTOMA
     Dosage: UNK, CYCLIC (AUC OF 7/DAY X 3D) (CONSOLIDATION)
  7. CYCLOPHOSPHAMIDE. [Suspect]
     Active Substance: CYCLOPHOSPHAMIDE
     Indication: MEDULLOBLASTOMA
     Dosage: UNK, CYCLIC (ON DAYS 2 AND 3) (INDUCTION)
  8. METHOTREXATE SODIUM. [Suspect]
     Active Substance: METHOTREXATE SODIUM
     Indication: MEDULLOBLASTOMA
     Dosage: UNK, CYCLIC (ON DAY 3) (INDUCTION, HIGH DOSE)
  9. VINCRISTINE SULFATE. [Suspect]
     Active Substance: VINCRISTINE SULFATE
     Indication: MEDULLOBLASTOMA
     Dosage: 0.05 MG/KG, CYCLIC (ON DAYS 1, 8 AND 15 OF CYCLES 1 TO 3 ONLY) (INDUCTION)
  10. CISPLATIN. [Suspect]
     Active Substance: CISPLATIN
     Indication: MEDULLOBLASTOMA
     Dosage: 3.5 MG/KG, CYCLIC (ON DAY 1) (INDUCTION)

REACTIONS (2)
  - Multiple organ dysfunction syndrome [Fatal]
  - Venoocclusive disease [Fatal]
